FAERS Safety Report 9508502 (Version 3)
Quarter: 2013Q3

REPORT INFORMATION
  Report Type: Spontaneous
  Country: US (occurrence: US)
  Receive Date: 20130909
  Receipt Date: 20130927
  Transmission Date: 20140515
  Serious: No
  Sender: FDA-Public Use
  Company Number: US-PFIZER INC-2013236090

PATIENT
  Age: 85 Year
  Sex: Male

DRUGS (1)
  1. REVATIO [Suspect]
     Indication: PULMONARY HYPERTENSION
     Dosage: 20 MG, 3X/DAY
     Dates: start: 20130726, end: 20130813

REACTIONS (5)
  - Insomnia [Unknown]
  - Dyspnoea [Unknown]
  - Abdominal discomfort [Unknown]
  - Headache [Unknown]
  - Influenza like illness [Unknown]
